FAERS Safety Report 22209623 (Version 1)
Quarter: 2023Q2

REPORT INFORMATION
  Report Type: Spontaneous
  Country: HR (occurrence: HR)
  Receive Date: 20230414
  Receipt Date: 20230414
  Transmission Date: 20230722
  Serious: Yes (Hospitalization, Other)
  Sender: FDA-Public Use
  Company Number: HR-JNJFOC-20230415319

PATIENT
  Age: 68 Year
  Sex: Male

DRUGS (3)
  1. DARZALEX [Suspect]
     Active Substance: DARATUMUMAB
     Indication: Plasma cell myeloma
     Route: 065
     Dates: start: 20210517
  2. REVLIMID [Suspect]
     Active Substance: LENALIDOMIDE
     Indication: Plasma cell myeloma
     Route: 065
     Dates: start: 20210517
  3. DEXAMETHASONE [Suspect]
     Active Substance: DEXAMETHASONE
     Indication: Plasma cell myeloma
     Route: 065
     Dates: start: 20210517

REACTIONS (9)
  - Spinal compression fracture [Unknown]
  - Cholangitis acute [Recovered/Resolved]
  - Clostridium difficile colitis [Unknown]
  - Gastroenteritis salmonella [Unknown]
  - Urinary tract infection pseudomonal [Recovered/Resolved]
  - Gait disturbance [Unknown]
  - Tremor [Unknown]
  - Diarrhoea [Unknown]
  - Muscle disorder [Unknown]

NARRATIVE: CASE EVENT DATE: 20210601
